FAERS Safety Report 10429433 (Version 1)
Quarter: 2014Q3

REPORT INFORMATION
  Report Type: Spontaneous
  Country: US (occurrence: None)
  Receive Date: 20140902
  Receipt Date: 20140902
  Transmission Date: 20150326
  Serious: Yes (Hospitalization)
  Sender: FDA-Public Use
  Company Number: None

PATIENT
  Age: 49 Year
  Sex: Male

DRUGS (1)
  1. LEVETIRACETAM. [Suspect]
     Active Substance: LEVETIRACETAM
     Indication: CONVULSION PROPHYLAXIS
     Dosage: EVERY 12 HOURS
     Route: 048
     Dates: start: 20140728

REACTIONS (2)
  - Treatment noncompliance [None]
  - Head injury [None]

NARRATIVE: CASE EVENT DATE: 20140728
